FAERS Safety Report 6429877-5 (Version None)
Quarter: 2009Q4

REPORT INFORMATION
  Report Type: 
  Country: None (occurrence: None)
  Receive Date: 20091106
  Receipt Date: 20091030
  Transmission Date: 20100525
  Serious: Yes (Hospitalization)
  Sender: FDA-Public Use
  Company Number: CA-AVENTIS-200922192GDDC

PATIENT
  Age: 74 Year
  Sex: Male

DRUGS (6)
  1. INSULIN GLARGINE [Suspect]
     Route: 058
     Dates: start: 20040628
  2. OPTIPEN (INSULIN PUMP) [Suspect]
  3. CODE UNBROKEN [Suspect]
     Dates: start: 20040628
  4. METFORMIN [Concomitant]
     Dates: start: 20080901
  5. ENALAPRIL [Concomitant]
     Indication: HYPERTENSION
     Dates: start: 20030101
  6. ASPIRIN [Concomitant]
     Indication: PROPHYLAXIS
     Dates: start: 20030101

REACTIONS (2)
  - DEHYDRATION [None]
  - RENAL FAILURE ACUTE [None]
